FAERS Safety Report 22639476 (Version 8)
Quarter: 2024Q2

REPORT INFORMATION
  Report Type: Spontaneous
  Country: PL (occurrence: PL)
  Receive Date: 20230626
  Receipt Date: 20240402
  Transmission Date: 20240715
  Serious: Yes (Hospitalization, Other)
  Sender: FDA-Public Use
  Company Number: PL-AUROBINDO-AUR-APL-2023-043653

PATIENT
  Age: 26 Year
  Sex: Female

DRUGS (32)
  1. CLONAZEPAM [Suspect]
     Active Substance: CLONAZEPAM
     Indication: Polyneuropathy
     Dosage: 1 MILLIGRAM, ONCE A DAY
     Route: 065
  2. GABAPENTIN [Suspect]
     Active Substance: GABAPENTIN
     Indication: Neuralgia
     Dosage: 600 MILLIGRAM, 3 TIMES A DAY
     Route: 065
  3. GABAPENTIN [Suspect]
     Active Substance: GABAPENTIN
     Dosage: 400 MILLIGRAM, 3 TIMES A DAY
     Route: 065
  4. GABAPENTIN [Suspect]
     Active Substance: GABAPENTIN
     Dosage: 600 MILLIGRAM, ONCE A DAY
     Route: 065
  5. GABAPENTIN [Suspect]
     Active Substance: GABAPENTIN
     Dosage: 400 MILLIGRAM, ONCE A DAY
     Route: 065
  6. GABAPENTIN [Suspect]
     Active Substance: GABAPENTIN
     Dosage: 1200 MILLIGRAM, 3 TIMES A DAY (TID)
     Route: 065
  7. GABAPENTIN [Suspect]
     Active Substance: GABAPENTIN
     Dosage: 1800 MILLIGRAM, ONCE A DAY
     Route: 065
  8. IBUPROFEN [Suspect]
     Active Substance: IBUPROFEN
     Indication: Pain
     Dosage: 800 MILLIGRAM, ONCE A DAY (400 MILLIGRAM, 2 X 400 MG
     Route: 065
  9. IBUPROFEN [Suspect]
     Active Substance: IBUPROFEN
     Indication: Neuralgia
  10. LEVETIRACETAM [Suspect]
     Active Substance: LEVETIRACETAM
     Indication: Myoclonus
     Dosage: 2000 MILLIGRAM, ONCE A DAY (2 X 1000 MG)
     Route: 065
  11. LEVETIRACETAM [Suspect]
     Active Substance: LEVETIRACETAM
     Dosage: 800 MILLIGRAM, TWO TIMES A DAY (2 X 800 MG) DAILY
     Route: 065
  12. PAROXETINE [Suspect]
     Active Substance: PAROXETINE
     Indication: Nervous system disorder
     Dosage: 40 MILLIGRAM, ONCE A DAY (1 X 40 MG IN THE MORNING
     Route: 065
  13. PAROXETINE [Suspect]
     Active Substance: PAROXETINE
     Indication: Polyneuropathy
     Dosage: 80 MILLIGRAM
     Route: 065
  14. PREDNISONE [Suspect]
     Active Substance: PREDNISONE
     Indication: Neuralgia
     Dosage: 10 MILLIGRAM
     Route: 048
  15. PREDNISONE [Suspect]
     Active Substance: PREDNISONE
     Indication: Analgesic therapy
  16. PREDNISONE [Suspect]
     Active Substance: PREDNISONE
     Indication: Neuralgia
     Dosage: 10 MILLIGRAM
     Route: 048
  17. PREDNISONE [Suspect]
     Active Substance: PREDNISONE
     Indication: Pain
  18. FENTANYL [Suspect]
     Active Substance: FENTANYL\FENTANYL CITRATE
     Indication: Pain
     Dosage: 150 MICROGRAM (Q1H (EVERY 3 DAYS))
     Route: 045
  19. FENTANYL [Suspect]
     Active Substance: FENTANYL\FENTANYL CITRATE
     Indication: Neuralgia
     Dosage: 150 MICROGRAM (Q1H (EVERY 3 DAYS))
     Route: 062
  20. FENTANYL [Suspect]
     Active Substance: FENTANYL\FENTANYL CITRATE
     Indication: Analgesic therapy
     Dosage: 300 MICROGRAM, 1 HOUR
     Route: 045
  21. MORPHINE [Suspect]
     Active Substance: MORPHINE
     Indication: Pain
     Dosage: 60 MILLIGRAM, ONCE A DAY (2 X 30 MG)
     Route: 065
  22. MORPHINE [Suspect]
     Active Substance: MORPHINE
     Indication: Neuralgia
  23. PIRACETAM [Suspect]
     Active Substance: PIRACETAM
     Indication: Nervous system disorder
     Dosage: 4800 MILLIGRAM, ONCE A DAY (2 X 2400 MG)
     Route: 065
  24. PIRACETAM [Suspect]
     Active Substance: PIRACETAM
     Indication: Polyneuropathy
  25. VALPROIC ACID [Suspect]
     Active Substance: VALPROIC ACID
     Indication: Neuralgia
     Dosage: 600 MILLIGRAM, ONCE A DAY (2 X 300 MG)
     Route: 065
  26. VALPROIC ACID [Suspect]
     Active Substance: VALPROIC ACID
     Indication: Nervous system disorder
  27. AMITRIPTYLINE [Concomitant]
     Active Substance: AMITRIPTYLINE
     Indication: Pain
     Dosage: 50 MILLIGRAM, ONCE A DAY(50 MG PER NIGHT)
     Route: 065
  28. DULOXETINE [Concomitant]
     Active Substance: DULOXETINE
     Indication: Pain
     Dosage: UNK
     Route: 065
  29. PAROXETINUM [Concomitant]
     Indication: Polyneuropathy
     Dosage: 40 MILLIGRAM, ONCE A DAY
     Route: 065
  30. PAROXETINUM [Concomitant]
     Indication: Nervous system disorder
     Dosage: 80 MILLIGRAM
     Route: 065
  31. CLONAZEPAM [Concomitant]
     Active Substance: CLONAZEPAM
     Indication: Myoclonus
     Dosage: 1 MILLIGRAM, ONCE A DAY (2 X 0.5 MG)
     Route: 065
  32. CLONAZEPAM [Concomitant]
     Active Substance: CLONAZEPAM
     Dosage: 0.5 MILLIGRAM, ONCE A DAY
     Route: 065

REACTIONS (22)
  - Condition aggravated [Recovered/Resolved]
  - Mitochondrial toxicity [Recovered/Resolved]
  - Neuralgia [Recovered/Resolved]
  - Hypoaesthesia [Recovered/Resolved]
  - Drug abuse [Recovered/Resolved]
  - Drug dependence [Recovered/Resolved]
  - Speech disorder [Recovered/Resolved]
  - Mitochondrial encephalomyopathy [Recovered/Resolved]
  - Restlessness [Recovered/Resolved]
  - Somnolence [Recovered/Resolved]
  - Disorientation [Recovered/Resolved]
  - Drug ineffective [Unknown]
  - Abdominal pain [Recovering/Resolving]
  - Disorganised speech [Recovered/Resolved]
  - Pain in extremity [Recovered/Resolved]
  - Pain [Recovered/Resolved]
  - Myoclonus [Recovered/Resolved]
  - Off label use [Unknown]
  - Overdose [Unknown]
  - Medication error [Unknown]
  - Wrong product administered [Unknown]
  - Product selection error [Unknown]

NARRATIVE: CASE EVENT DATE: 20220501
